FAERS Safety Report 18814868 (Version 1)
Quarter: 2021Q1

REPORT INFORMATION
  Report Type: Spontaneous
  Country: US (occurrence: US)
  Receive Date: 20210126
  Receipt Date: 20210126
  Transmission Date: 20210419
  Serious: Yes (Death)
  Sender: FDA-Public Use
  Company Number: None

PATIENT
  Age: 69 Year
  Sex: Female
  Weight: 99.79 kg

DRUGS (26)
  1. ATORVASTATION [Concomitant]
  2. ALBUTEOEROL SULFATE [Concomitant]
  3. POTASSIUM [Concomitant]
     Active Substance: POTASSIUM
  4. ONBANSTETRON [Concomitant]
  5. BUPROPION. [Concomitant]
     Active Substance: BUPROPION
  6. ZINC. [Concomitant]
     Active Substance: ZINC
  7. LOSARTAN. [Concomitant]
     Active Substance: LOSARTAN
  8. ASPIRIN BAYER [Concomitant]
     Active Substance: ASPIRIN
  9. PROCHLORPERAZINE. [Concomitant]
     Active Substance: PROCHLORPERAZINE
  10. METFORMIN [Suspect]
     Active Substance: METFORMIN HYDROCHLORIDE
     Indication: DIABETES MELLITUS
     Route: 048
     Dates: start: 201802
  11. DICYCLEOMINE [Concomitant]
  12. V?D3 [Concomitant]
  13. TUMS [Concomitant]
     Active Substance: CALCIUM CARBONATE
  14. ASMANEX TWISTER [Concomitant]
  15. IPRATROPIUM BROMIDE. [Concomitant]
     Active Substance: IPRATROPIUM BROMIDE
  16. DEXAMETHASON [Concomitant]
     Active Substance: DEXAMETHASONE
  17. ACETAMINOPHOPHIEN [Concomitant]
  18. MORPHINE [Concomitant]
     Active Substance: MORPHINE
  19. MULTI VITAMANS [Concomitant]
  20. VENLAFAXINE [Concomitant]
     Active Substance: VENLAFAXINE HYDROCHLORIDE
  21. ZANTAC [Concomitant]
     Active Substance: RANITIDINE HYDROCHLORIDE
  22. VITAMIN B12 [Concomitant]
     Active Substance: CYANOCOBALAMIN
  23. TRAMADOL. [Concomitant]
     Active Substance: TRAMADOL
  24. IMODIUM PRODUCT [Concomitant]
  25. METHYLPHENIDATES [Concomitant]
  26. GABAPENTIN. [Concomitant]
     Active Substance: GABAPENTIN

REACTIONS (2)
  - Diarrhoea [None]
  - Abdominal pain upper [None]
